FAERS Safety Report 4526044-7 (Version None)
Quarter: 2004Q4

REPORT INFORMATION
  Report Type: 
  Country: None (occurrence: None)
  Receive Date: 20041129
  Receipt Date: 20040908
  Transmission Date: 20050328
  Serious: Yes (Hospitalization, Other)
  Sender: FDA-Public Use
  Company Number: USA040876082

PATIENT
  Sex: Male

DRUGS (2)
  1. ZYPREXA [Suspect]
     Dosage: 10 MG IN THE EVENING
  2. DEPAKOTE [Concomitant]

REACTIONS (3)
  - DYSPNOEA [None]
  - HYPERSOMNIA [None]
  - OVERDOSE [None]
